FAERS Safety Report 14160293 (Version 1)
Quarter: 2017Q4

REPORT INFORMATION
  Report Type: Report from Study
  Country: US (occurrence: US)
  Receive Date: 20171106
  Receipt Date: 20171106
  Transmission Date: 20180321
  Serious: Yes (Hospitalization)
  Sender: FDA-Public Use
  Company Number: US-ROCHE-2005987

PATIENT
  Age: 70 Year
  Sex: Male
  Weight: 111.23 kg

DRUGS (6)
  1. CLONIDINE. [Concomitant]
     Active Substance: CLONIDINE
     Indication: PAIN
     Dosage: 63.49 MCG/DAY THROUGH MEDICATION PUMP
     Route: 065
  2. MORPHINE [Concomitant]
     Active Substance: MORPHINE
     Indication: PAIN
     Dosage: THROUGH MEDICATION PUMP
     Route: 065
  3. ESBRIET [Suspect]
     Active Substance: PIRFENIDONE
     Dosage: MAINTENANCE DOSE: 3 PILLS 3 TIMES DAILY ONGOING NO
     Route: 065
     Dates: start: 20171002
  4. ESBRIET [Suspect]
     Active Substance: PIRFENIDONE
     Indication: IDIOPATHIC PULMONARY FIBROSIS
     Dosage: WEEK 1 DOSAGE: 1 PILL THREE TIMES DAILY ?ONGOING: NO
     Route: 065
  5. ESBRIET [Suspect]
     Active Substance: PIRFENIDONE
     Dosage: WEEK 2 DOSAGE:2 PILLS 3 TIMES DAILY:ONGOING NO
     Route: 065
     Dates: start: 20170703
  6. FENTANYL. [Concomitant]
     Active Substance: FENTANYL
     Indication: PAIN
     Dosage: 1.523 MG/DAY THROUGH MEDICATION PUMP
     Route: 065

REACTIONS (13)
  - Tremor [Unknown]
  - Malaise [Unknown]
  - Pleurisy [Unknown]
  - Fatigue [Recovering/Resolving]
  - Asthenia [Unknown]
  - Back disorder [Not Recovered/Not Resolved]
  - Cardiac flutter [Unknown]
  - Respiratory arrest [Unknown]
  - Hypotension [Unknown]
  - Vomiting [Unknown]
  - Hypersomnia [Recovering/Resolving]
  - Syncope [Unknown]
  - Muscular weakness [Recovering/Resolving]

NARRATIVE: CASE EVENT DATE: 201708
